FAERS Safety Report 19419808 (Version 1)
Quarter: 2021Q2

REPORT INFORMATION
  Report Type: Spontaneous
  Country: US (occurrence: US)
  Receive Date: 20210615
  Receipt Date: 20210615
  Transmission Date: 20210717
  Serious: No
  Sender: FDA-Public Use
  Company Number: US-GW PHARMA-202106USGW02844

PATIENT

DRUGS (3)
  1. EPIDIOLEX [Suspect]
     Active Substance: CANNABIDIOL
     Indication: LENNOX-GASTAUT SYNDROME
     Dosage: 90 MILLIGRAM
     Route: 048
     Dates: start: 20210415
  2. EPIDIOLEX [Suspect]
     Active Substance: CANNABIDIOL
     Indication: CEREBRAL PALSY
  3. EPIDIOLEX [Suspect]
     Active Substance: CANNABIDIOL
     Indication: HEMIPLEGIA

REACTIONS (1)
  - Lethargy [Unknown]

NARRATIVE: CASE EVENT DATE: 2021
